FAERS Safety Report 23347150 (Version 3)
Quarter: 2024Q4

REPORT INFORMATION
  Report Type: Spontaneous
  Country: JP (occurrence: JP)
  Receive Date: 20231228
  Receipt Date: 20241011
  Transmission Date: 20250114
  Serious: Yes (Other)
  Sender: BRACCO
  Company Number: JP-BAYER-2023A184602

PATIENT
  Age: 73 Year
  Sex: Male

DRUGS (10)
  1. IOPAMIRON [Suspect]
     Active Substance: IOPAMIDOL
     Indication: Angiocardiogram
     Dosage: ONCE
     Dates: start: 20231207, end: 20231207
  2. AZILSARTAN KAMEDOXOMIL [Concomitant]
     Active Substance: AZILSARTAN KAMEDOXOMIL
  3. ASPIRIN [Concomitant]
     Active Substance: ASPIRIN
  4. EZETIMIBE [Concomitant]
     Active Substance: EZETIMIBE
  5. ISOSORBIDE [Concomitant]
     Active Substance: ISOSORBIDE
  6. PEMAFIBRATE [Concomitant]
     Active Substance: PEMAFIBRATE
  7. PREDONINE [Concomitant]
     Active Substance: PREDNISOLONE
     Indication: Nephrotic syndrome
     Dosage: UNK
  8. PREDONINE [Concomitant]
     Active Substance: PREDNISOLONE
     Dosage: UNK (TAPERED)
  9. ROSUVASTATIN [Concomitant]
     Active Substance: ROSUVASTATIN
  10. VONOPRAZAN FUMARATE [Concomitant]
     Active Substance: VONOPRAZAN FUMARATE

REACTIONS (2)
  - Kounis syndrome [Unknown]
  - Contrast media allergy [Recovered/Resolved]

NARRATIVE: CASE EVENT DATE: 20231207
